FAERS Safety Report 10144677 (Version 1)
Quarter: 2014Q2

REPORT INFORMATION
  Report Type: Spontaneous
  Country: US (occurrence: US)
  Receive Date: 20140430
  Receipt Date: 20140430
  Transmission Date: 20141212
  Serious: No
  Sender: FDA-Public Use
  Company Number: US-SANOFI-AVENTIS-2013SA082621

PATIENT
  Age: 46 Year
  Sex: Male

DRUGS (1)
  1. LOVENOX [Suspect]
     Indication: CEREBROVASCULAR ACCIDENT
     Dosage: TAKEN FROM: 3 YEARS AGO
     Route: 065

REACTIONS (4)
  - Movement disorder [Not Recovered/Not Resolved]
  - Orthosis user [Not Recovered/Not Resolved]
  - Injection site haemorrhage [Not Recovered/Not Resolved]
  - Epistaxis [Not Recovered/Not Resolved]
